FAERS Safety Report 20429673 (Version 1)
Quarter: 2022Q1

REPORT INFORMATION
  Report Type: Report from Study
  Country: FR (occurrence: FR)
  Receive Date: 20220204
  Receipt Date: 20220204
  Transmission Date: 20220423
  Serious: Yes (Life-Threatening, Hospitalization)
  Sender: FDA-Public Use
  Company Number: FR-SERVIER-S19009447

PATIENT

DRUGS (13)
  1. PEGASPARGASE [Suspect]
     Active Substance: PEGASPARGASE
     Indication: Acute lymphocytic leukaemia
     Dosage: 750 IU, QD ON D4
     Route: 042
     Dates: start: 20190624, end: 20190624
  2. TN UNSPECIFIED [Concomitant]
     Indication: Acute lymphocytic leukaemia
     Dosage: 6 MG, QD, D1 TO D7, D15 TO D21
     Route: 048
     Dates: start: 20190621, end: 20190709
  3. TN UNSPECIFIED [Concomitant]
     Indication: Acute lymphocytic leukaemia
     Dosage: 0.8 MG, QD, D1, D8, D15, D22
     Route: 042
     Dates: start: 20190621, end: 20190710
  4. TN UNSPECIFIED [Concomitant]
     Indication: Acute lymphocytic leukaemia
     Dosage: 25 MG, D4
     Route: 037
     Dates: start: 20190624
  5. TN UNSPECIFIED [Concomitant]
     Dosage: 25 MG, D31
     Route: 037
     Dates: start: 20190830, end: 20190830
  6. TN UNSPECIFIED [Concomitant]
     Dosage: 46 MG, D31-D34
     Route: 042
     Dates: start: 20190830, end: 20190902
  7. TN UNSPECIFIED [Concomitant]
     Indication: Acute lymphocytic leukaemia
     Dosage: 10 MG, D4
     Route: 037
     Dates: start: 20190624
  8. TN UNSPECIFIED [Concomitant]
     Dosage: 10 MG, D31
     Route: 037
     Dates: start: 20190830, end: 20190830
  9. TN UNSPECIFIED [Concomitant]
     Indication: Acute lymphocytic leukaemia
     Dosage: 12.5 MG, D4
     Route: 037
     Dates: start: 20190624
  10. TN UNSPECIFIED [Concomitant]
     Dosage: 12.5 MG, D31
     Route: 037
     Dates: start: 20190830, end: 20190830
  11. TN UNSPECIFIED [Concomitant]
     Indication: Acute lymphocytic leukaemia
     Dosage: 16 MG, D1; D8; D15; D22
     Route: 042
     Dates: start: 20190621, end: 20190710
  12. TN  UNSPECIFIED [Concomitant]
     Indication: Acute lymphocytic leukaemia
     Dosage: 35 MG, D29-D35
     Route: 048
     Dates: start: 20190828, end: 20190903
  13. TN UNSPECIFIED [Concomitant]
     Indication: Acute lymphocytic leukaemia
     Dosage: 620 MG, D29
     Route: 042
     Dates: start: 20190830, end: 20190830

REACTIONS (4)
  - Complication associated with device [Recovered/Resolved]
  - Haemothorax [Recovered/Resolved]
  - Vascular pseudoaneurysm [Recovered/Resolved]
  - Pseudomonal sepsis [Recovered/Resolved]

NARRATIVE: CASE EVENT DATE: 20190806
